FAERS Safety Report 22284606 (Version 1)
Quarter: 2023Q2

REPORT INFORMATION
  Report Type: Spontaneous
  Country: US (occurrence: US)
  Receive Date: 20230504
  Receipt Date: 20230504
  Transmission Date: 20230722
  Serious: No
  Sender: FDA-Public Use
  Company Number: US-TARO PHARMACEUTICALS USA INC.-2022TAR01225

PATIENT

DRUGS (1)
  1. METRONIDAZOLE [Suspect]
     Active Substance: METRONIDAZOLE
     Indication: Rosacea
     Dosage: UNK,ONCE A DAY INCREASED TO TWICE A DAY, TOPICALLY TO FACE
     Route: 061
     Dates: start: 202208, end: 20220929

REACTIONS (4)
  - Urticaria [Recovered/Resolved]
  - Scar [Recovered/Resolved]
  - Pruritus [Recovered/Resolved]
  - Intentional product misuse [Unknown]

NARRATIVE: CASE EVENT DATE: 20220801
